FAERS Safety Report 19868720 (Version 1)
Quarter: 2021Q3

REPORT INFORMATION
  Report Type: Spontaneous
  Country: NO (occurrence: NO)
  Receive Date: 20210921
  Receipt Date: 20210921
  Transmission Date: 20211014
  Serious: Yes (Life-Threatening, Other)
  Sender: FDA-Public Use
  Company Number: NO-SA-2021SA310170

PATIENT
  Age: 43 Year
  Sex: Female
  Weight: 84 kg

DRUGS (2)
  1. ARAVA [Suspect]
     Active Substance: LEFLUNOMIDE
     Indication: ARTHRITIS
     Route: 048
     Dates: start: 202104, end: 20210901
  2. COMIRNATY [Interacting]
     Active Substance: TOZINAMERAN
     Indication: IMMUNISATION
     Dosage: DOSE NO. IN SERIES: 2 VACCINATION SITE: LEFT ARM
     Route: 030
     Dates: start: 20210826

REACTIONS (8)
  - Cold sweat [Unknown]
  - Nausea [Unknown]
  - Drug interaction [Unknown]
  - Blood pressure immeasurable [Unknown]
  - Acute hepatic failure [Not Recovered/Not Resolved]
  - Malaise [Unknown]
  - Vomiting [Unknown]
  - Dizziness [Unknown]

NARRATIVE: CASE EVENT DATE: 20210831
